FAERS Safety Report 5474811-8 (Version None)
Quarter: 2007Q3

REPORT INFORMATION
  Report Type: 
  Country: None (occurrence: None)
  Receive Date: 20070927
  Receipt Date: 20070927
  Transmission Date: 20080115
  Serious: Yes (Hospitalization)
  Sender: FDA-Public Use
  Company Number: None

PATIENT
  Sex: Female
  Weight: 108.8633 kg

DRUGS (5)
  1. ENBREL [Suspect]
     Indication: RHEUMATOID ARTHRITIS
     Dosage: 25MG  2 X WEEK  SQ
     Route: 058
     Dates: start: 20000301, end: 20070926
  2. CELEBREX [Concomitant]
  3. PREDNISONE [Concomitant]
  4. PLAQUENIL [Concomitant]
  5. METHOTREXATE [Concomitant]

REACTIONS (2)
  - BACK PAIN [None]
  - MYOCARDIAL INFARCTION [None]
